FAERS Safety Report 23448117 (Version 2)
Quarter: 2024Q1

REPORT INFORMATION
  Report Type: Spontaneous
  Country: PL (occurrence: PL)
  Receive Date: 20240126
  Receipt Date: 20240205
  Transmission Date: 20240409
  Serious: Yes (Other)
  Sender: FDA-Public Use
  Company Number: PL-SANDOZ-SDZ2023PL033407

PATIENT
  Age: 68 Year
  Sex: Male

DRUGS (16)
  1. KYMRIAH [Suspect]
     Active Substance: TISAGENLECLEUCEL
     Indication: Parkinson^s disease
     Dosage: 1 DOSAGE FORM, ONCE/SINGLE
     Route: 042
  2. DEXAMETHASONE [Suspect]
     Active Substance: DEXAMETHASONE
     Indication: Parkinson^s disease
     Dosage: 10 MG
     Route: 042
  3. DEXAMETHASONE [Suspect]
     Active Substance: DEXAMETHASONE
     Dosage: 10 MG (EVERY 6 HOURS)
     Route: 042
  4. CYCLOPHOSPHAMIDE [Suspect]
     Active Substance: CYCLOPHOSPHAMIDE
     Indication: Parkinson^s disease
     Dosage: UNK
     Route: 065
     Dates: start: 20210409, end: 20210913
  5. VINCRISTINE [Suspect]
     Active Substance: VINCRISTINE
     Indication: Parkinson^s disease
     Dosage: UNK
     Route: 065
     Dates: start: 20210409, end: 20210913
  6. RITUXIMAB [Suspect]
     Active Substance: RITUXIMAB
     Indication: Parkinson^s disease
     Dosage: UNK
     Route: 065
     Dates: start: 20210409, end: 20210913
  7. RITUXIMAB [Suspect]
     Active Substance: RITUXIMAB
     Indication: COVID-19
     Dosage: UNK
     Route: 065
     Dates: start: 20220620, end: 20220711
  8. ETOPOSIDE [Suspect]
     Active Substance: ETOPOSIDE
     Indication: Parkinson^s disease
     Dosage: UNK
     Route: 065
     Dates: start: 20210409, end: 20210913
  9. DOXORUBICIN [Suspect]
     Active Substance: DOXORUBICIN
     Indication: Parkinson^s disease
     Dosage: UNK
     Route: 065
     Dates: start: 20210409, end: 20210913
  10. CISPLATIN [Suspect]
     Active Substance: CISPLATIN
     Indication: Parkinson^s disease
     Dosage: UNK
     Route: 065
  11. CYTARABINE [Suspect]
     Active Substance: CYTARABINE
     Indication: Parkinson^s disease
     Dosage: UNK
     Route: 065
  12. FLUDARABINE PHOSPHATE [Suspect]
     Active Substance: FLUDARABINE PHOSPHATE
     Indication: Parkinson^s disease
     Dosage: 25 MG/M2 (FOR 3 DAYS)
     Route: 065
  13. PREDNISONE [Suspect]
     Active Substance: PREDNISONE
     Indication: Parkinson^s disease
     Dosage: UNK
     Route: 065
     Dates: start: 20210409, end: 20210913
  14. BENDAMUSTINE [Suspect]
     Active Substance: BENDAMUSTINE
     Indication: Parkinson^s disease
     Dosage: UNK
     Route: 065
     Dates: start: 20220105, end: 20220321
  15. BENDAMUSTINE [Suspect]
     Active Substance: BENDAMUSTINE
     Indication: COVID-19
  16. LENALIDOMIDE [Suspect]
     Active Substance: LENALIDOMIDE
     Indication: Product used for unknown indication
     Dosage: UNK
     Route: 065

REACTIONS (4)
  - Agranulocytosis [Unknown]
  - Immune effector cell-associated neurotoxicity syndrome [Recovering/Resolving]
  - Thrombocytopenia [Unknown]
  - Infection [Unknown]
